FAERS Safety Report 5109249-6 (Version None)
Quarter: 2006Q3

REPORT INFORMATION
  Report Type: 
  Country: None (occurrence: None)
  Receive Date: 20060918
  Receipt Date: 20060717
  Transmission Date: 20061208
  Serious: Yes (Death, Hospitalization)
  Sender: FDA-Public Use
  Company Number: BASF-05-013

PATIENT
  Age: 79 Year
  Sex: Male

DRUGS (20)
  1. IBUPROFEN [Suspect]
     Dosage: 800MG - TID - ORAL
     Route: 048
     Dates: start: 20050906
  2. CEP-7055 [Suspect]
     Indication: PAIN
     Dosage: 240 MG TID ORAL
     Route: 048
     Dates: start: 20050420, end: 20050908
  3. OXYCODONE HCL [Suspect]
     Indication: PAIN
     Dosage: SEE IMAGE
     Route: 048
     Dates: start: 20050215, end: 20050905
  4. OXYCODONE HCL [Suspect]
     Indication: PAIN
     Dosage: SEE IMAGE
     Route: 048
     Dates: start: 20050906
  5. OXYCONTIN [Suspect]
     Indication: PAIN
     Dosage: SEE IMAGE
     Route: 048
     Dates: start: 20050201, end: 20050611
  6. OXYCONTIN [Suspect]
     Indication: PAIN
     Dosage: SEE IMAGE
     Route: 048
     Dates: start: 20050712
  7. OXYCODONE HCL [Concomitant]
  8. OXYCONTIN [Concomitant]
  9. VERAPAMIL [Concomitant]
  10. TRIAMTERENE AND HYDROCHLOROTHIAZIDE [Concomitant]
  11. TRIAMTERENE [Concomitant]
  12. VITAMIN SUPPLEMENTS [Concomitant]
  13. AMBIEN [Concomitant]
  14. LORAZEPAM [Concomitant]
  15. REGLAN [Concomitant]
  16. ZANTAC [Concomitant]
  17. DECADRON [Concomitant]
  18. DONNATAL [Concomitant]
  19. TOPROL-XL [Concomitant]
  20. LISINOPRIL [Concomitant]

REACTIONS (7)
  - CONDITION AGGRAVATED [None]
  - CONFUSIONAL STATE [None]
  - DYSPNOEA [None]
  - MENTAL STATUS CHANGES [None]
  - METASTATIC NEOPLASM [None]
  - PNEUMONIA [None]
  - SOMNOLENCE [None]
